FAERS Safety Report 25714832 (Version 1)
Quarter: 2025Q3

REPORT INFORMATION
  Report Type: Report from Study
  Country: EU (occurrence: EU)
  Receive Date: 20250822
  Receipt Date: 20250822
  Transmission Date: 20251021
  Serious: Yes (Hospitalization, Other)
  Sender: CELLTRION
  Company Number: EU-MIMS-BCONMC-11390

PATIENT

DRUGS (10)
  1. HERZUMA [Suspect]
     Active Substance: TRASTUZUMAB-PKRB
     Indication: Product used for unknown indication
     Route: 065
     Dates: start: 20240815
  2. HULIO [Suspect]
     Active Substance: ADALIMUMAB-FKJP
     Indication: Psoriatic arthropathy
     Route: 065
     Dates: start: 20230415, end: 20240915
  3. HULIO [Suspect]
     Active Substance: ADALIMUMAB-FKJP
     Dosage: 40 MG, Q2W
     Route: 065
     Dates: start: 20230415, end: 20240915
  4. HULIO [Suspect]
     Active Substance: ADALIMUMAB-FKJP
     Dosage: 40 MG, Q2W
     Route: 065
     Dates: start: 20241205
  5. IBUPROFEN [Concomitant]
     Active Substance: IBUPROFEN
     Indication: Product used for unknown indication
     Route: 065
     Dates: start: 20020101
  6. IBUPROFEN [Concomitant]
     Active Substance: IBUPROFEN
     Route: 065
     Dates: start: 20020131
  7. METHOTREXATE [Concomitant]
     Active Substance: METHOTREXATE
     Indication: Product used for unknown indication
     Route: 058
     Dates: start: 20220719
  8. METHOTREXATE [Concomitant]
     Active Substance: METHOTREXATE
     Route: 065
     Dates: start: 20220719, end: 20240715
  9. CLINDAMYCIN [Concomitant]
     Active Substance: CLINDAMYCIN
     Indication: Product used for unknown indication
     Route: 065
     Dates: start: 20240216, end: 20240218
  10. PACLITAXEL [Concomitant]
     Active Substance: PACLITAXEL
     Indication: Product used for unknown indication
     Route: 065
     Dates: start: 20240815, end: 20241021

REACTIONS (2)
  - Osteonecrosis of jaw [Recovered/Resolved]
  - Invasive ductal breast carcinoma [Not Recovered/Not Resolved]

NARRATIVE: CASE EVENT DATE: 20240201
